FAERS Safety Report 19141368 (Version 1)
Quarter: 2021Q2

REPORT INFORMATION
  Report Type: Report from Study
  Country: CA (occurrence: CA)
  Receive Date: 20210415
  Receipt Date: 20210415
  Transmission Date: 20210717
  Serious: Yes (Life-Threatening, Hospitalization)
  Sender: FDA-Public Use
  Company Number: CA-MYLANLABS-2021M1022359

PATIENT
  Age: 30 Year
  Sex: Male
  Weight: 78 kg

DRUGS (1)
  1. CLOZAPINE. [Suspect]
     Active Substance: CLOZAPINE
     Indication: SCHIZOPHRENIA
     Dosage: 150 MILLIGRAM, BID ((2 EVERY 1 DAYS))
     Route: 048

REACTIONS (6)
  - Cardiac failure [Unknown]
  - Hyperthermia [Unknown]
  - Pleuritic pain [Unknown]
  - Viral myocarditis [Unknown]
  - Headache [Unknown]
  - Myalgia [Unknown]
